FAERS Safety Report 4796404-8 (Version None)
Quarter: 2005Q3

REPORT INFORMATION
  Report Type: 
  Country: None (occurrence: None)
  Receive Date: 20050916
  Receipt Date: 20040915
  Transmission Date: 20060218
  Serious: Yes (Other)
  Sender: FDA-Public Use
  Company Number: US-JNJFOC-20040905942

PATIENT
  Age: 26 Year
  Sex: Male
  Weight: 131.0895 kg

DRUGS (5)
  1. TOPAMAX [Suspect]
     Indication: MIGRAINE
     Dosage: 50 MG  2 IN 1 DAY, ORAL
     Route: 048
     Dates: start: 20040906, end: 20040912
  2. TOPAMAX [Suspect]
     Indication: MIGRAINE
     Dosage: 50 MG  2 IN 1 DAY, ORAL
     Route: 048
     Dates: start: 20040913
  3. LEXAPRO [Concomitant]
  4. INDERAL [Concomitant]
  5. TRILEPTOL(OXCARBAZEPINE) [Concomitant]

REACTIONS (1)
  - ANGLE CLOSURE GLAUCOMA [None]
